FAERS Safety Report 5772327-2 (Version None)
Quarter: 2008Q2

REPORT INFORMATION
  Report Type: 
  Country: None (occurrence: None)
  Receive Date: 20080613
  Receipt Date: 20080602
  Transmission Date: 20081010
  Serious: Yes (Hospitalization)
  Sender: FDA-Public Use
  Company Number: FR-ROCHE-568477

PATIENT
  Sex: Female

DRUGS (9)
  1. ROCEPHIN [Suspect]
     Indication: OESOPHAGOGASTRODUODENOSCOPY
     Dosage: FORM: INJECTABLE SOLUTION.
     Route: 042
     Dates: start: 20080219, end: 20080219
  2. SOMATOSTATINE [Suspect]
     Route: 042
     Dates: start: 20080219, end: 20080219
  3. ERYTHROMYCIN [Suspect]
     Indication: OESOPHAGOGASTRODUODENOSCOPY
     Route: 042
     Dates: start: 20080219, end: 20080219
  4. PANTOPRAZOLE SODIUM [Concomitant]
     Dosage: DRUG NAME: INIPOMP; DOSAGE: 1 DOSE DAILY.
     Route: 048
  5. ALDACTONE [Concomitant]
     Dosage: DRUG NAME: ALDACTONE; DOSAGE 1 DOSE DAILY.
     Route: 048
  6. LEVOTHYROXINE SODIUM [Concomitant]
     Indication: HYPOTHYROIDISM
     Dosage: DOSAGE: 1 DOSE DAILY.
     Route: 048
  7. VITAMIN B1/VITAMIN B6 [Concomitant]
     Dosage: DOSAGE: '3 DOSES DAILY'.
  8. VITAMIN B1/VITAMIN B6 [Concomitant]
     Dosage: DOSAGE: '3 DOSES DAILY'.
  9. PRIMPERAN TAB [Concomitant]
     Dosage: TAKEN 3 TIMES DAILY
     Route: 042
     Dates: start: 20080220, end: 20080222

REACTIONS (1)
  - PANCYTOPENIA [None]
